FAERS Safety Report 23226005 (Version 2)
Quarter: 2023Q4

REPORT INFORMATION
  Report Type: Spontaneous
  Country: DE (occurrence: DE)
  Receive Date: 20231124
  Receipt Date: 20231129
  Transmission Date: 20240110
  Serious: Yes (Hospitalization, Other)
  Sender: FDA-Public Use
  Company Number: DE-SANDOZ-SDZ2023DE055699

PATIENT
  Age: 26 Year
  Sex: Male

DRUGS (6)
  1. RITUXIMAB [Suspect]
     Active Substance: RITUXIMAB
     Indication: Insulin resistance
     Dosage: ONE CYCLE (TWO DOSES)
     Route: 065
  2. PREDNISOLONE [Suspect]
     Active Substance: PREDNISOLONE
     Indication: Insulin resistance
     Dosage: UNK
     Route: 065
  3. CYCLOSPORINE [Suspect]
     Active Substance: CYCLOSPORINE
     Indication: Graft versus host disease
     Dosage: STARTED 1 DAY BEFORE PBSCT
     Route: 065
  4. CYCLOSPORINE [Suspect]
     Active Substance: CYCLOSPORINE
     Dosage: ADJUSTED TO A TARGET BLOOD LEVEL OF 200 NG/ML
     Route: 065
  5. MYCOPHENOLATE MOFETIL [Suspect]
     Active Substance: MYCOPHENOLATE MOFETIL
     Indication: Graft versus host disease
     Dosage: 1000 MG, TID STARTING FROM DAY 0,8 H AFTER PBSCT
     Route: 065
  6. MYCOPHENOLATE MOFETIL [Suspect]
     Active Substance: MYCOPHENOLATE MOFETIL
     Dosage: 500 MG, Q2W
     Route: 065

REACTIONS (6)
  - Septic shock [Unknown]
  - Acute respiratory distress syndrome [Unknown]
  - Right ventricular failure [Unknown]
  - Disseminated intravascular coagulation [Unknown]
  - Opportunistic infection [Unknown]
  - Drug ineffective [Unknown]
